FAERS Safety Report 4626111-3 (Version None)
Quarter: 2005Q2

REPORT INFORMATION
  Report Type: 
  Country: None (occurrence: None)
  Receive Date: 20050404
  Receipt Date: 20040802
  Transmission Date: 20051028
  Serious: Yes (Disabling, Other)
  Sender: FDA-Public Use
  Company Number: AU-BRISTOL-MYERS SQUIBB COMPANY-12671897

PATIENT
  Age: 77 Year
  Sex: Male
  Weight: 78 kg

DRUGS (12)
  1. HOLOXAN [Suspect]
     Indication: NON-HODGKIN'S LYMPHOMA
     Dosage: THERAPY DATES: 30-MAR TO 01-APR-2004
     Route: 042
     Dates: start: 20040401, end: 20040401
  2. MESNA [Suspect]
     Indication: NON-HODGKIN'S LYMPHOMA
     Route: 042
     Dates: start: 20040101, end: 20040101
  3. ETOPOSIDE [Suspect]
     Indication: NON-HODGKIN'S LYMPHOMA
     Route: 042
     Dates: start: 20040101, end: 20040101
  4. CARBOPLATIN [Suspect]
     Indication: NON-HODGKIN'S LYMPHOMA
     Dosage: THERAPY DATES: 30-MAR TO 01-APR-2004
     Route: 042
     Dates: start: 20040401, end: 20040401
  5. DEXAMETHASONE [Concomitant]
  6. ONDANSETRON [Concomitant]
  7. BACTRIM [Concomitant]
  8. ISOPTIN [Concomitant]
  9. AVAPRO [Concomitant]
  10. SOMAC [Concomitant]
  11. FLUCONAZOLE [Concomitant]
  12. ALLOPURINOL [Concomitant]

REACTIONS (3)
  - COUGH [None]
  - DYSPNOEA [None]
  - OBSTRUCTIVE AIRWAYS DISORDER [None]
